FAERS Safety Report 6404654-X (Version None)
Quarter: 2009Q4

REPORT INFORMATION
  Report Type: 
  Country: None (occurrence: None)
  Receive Date: 20091016
  Receipt Date: 20091006
  Transmission Date: 20100525
  Serious: Yes (Hospitalization)
  Sender: FDA-Public Use
  Company Number: JP-PFIZER INC-2009284242

PATIENT
  Age: 58 Year

DRUGS (3)
  1. CELECOX [Suspect]
     Dosage: UNK
     Dates: start: 20090501
  2. MYONAL [Suspect]
     Dosage: UNK
     Route: 048
     Dates: start: 20090501
  3. MUCOSTA [Concomitant]
     Dosage: UNK
     Dates: start: 20090501

REACTIONS (1)
  - SHOCK [None]
